FAERS Safety Report 25740088 (Version 1)
Quarter: 2025Q3

REPORT INFORMATION
  Report Type: Other
  Country: EU (occurrence: EU)
  Receive Date: 20250829
  Receipt Date: 20250829
  Transmission Date: 20251020
  Serious: Yes (Hospitalization, Other)
  Sender: ANI
  Company Number: EU-ANIPHARMA-024326

PATIENT
  Age: 63 Year
  Sex: Female

DRUGS (9)
  1. INDAPAMIDE [Suspect]
     Active Substance: INDAPAMIDE
     Indication: Product used for unknown indication
  2. CEFOTAXIME [Concomitant]
     Active Substance: CEFOTAXIME SODIUM
     Indication: Acute kidney injury
  3. PERINDOPRIL [Concomitant]
     Active Substance: PERINDOPRIL
     Indication: Product used for unknown indication
  4. METFORMIN [Concomitant]
     Active Substance: METFORMIN HYDROCHLORIDE
     Indication: Product used for unknown indication
  5. CANAGLIFLOZIN [Concomitant]
     Active Substance: CANAGLIFLOZIN
     Indication: Product used for unknown indication
  6. GLIMEPIRIDE [Concomitant]
     Active Substance: GLIMEPIRIDE
     Indication: Product used for unknown indication
  7. DABIGATRAN ETEXILATE MESYLATE [Concomitant]
     Active Substance: DABIGATRAN ETEXILATE MESYLATE
     Indication: Product used for unknown indication
  8. IDARUCIZUMAB [Concomitant]
     Active Substance: IDARUCIZUMAB
     Indication: Coagulopathy
  9. IDARUCIZUMAB [Concomitant]
     Active Substance: IDARUCIZUMAB
     Indication: Coagulopathy

REACTIONS (4)
  - Gastrointestinal haemorrhage [Unknown]
  - Epistaxis [Unknown]
  - Hypoglycaemia [Unknown]
  - Hypotension [Unknown]
